FAERS Safety Report 10005871 (Version 1)
Quarter: 2014Q1

REPORT INFORMATION
  Report Type: Spontaneous
  Country: US (occurrence: US)
  Receive Date: 20140313
  Receipt Date: 20140313
  Transmission Date: 20141002
  Serious: Yes (Hospitalization)
  Sender: FDA-Public Use
  Company Number: US-AMGEN-USASP2014017251

PATIENT
  Age: 40 Year
  Sex: Female

DRUGS (3)
  1. NEULASTA [Suspect]
     Indication: BREAST CANCER
     Dosage: UNK
     Route: 065
  2. CYCLOPHOSPHAMIDE [Concomitant]
     Indication: BREAST CANCER
     Dosage: UNK
  3. DOXORUBICIN [Concomitant]
     Indication: BREAST CANCER
     Dosage: UNK

REACTIONS (6)
  - Cough [Unknown]
  - Pain [Unknown]
  - Vomiting [Unknown]
  - Back pain [Unknown]
  - Abdominal pain [Unknown]
  - Nausea [Unknown]
